FAERS Safety Report 22858440 (Version 4)
Quarter: 2025Q3

REPORT INFORMATION
  Report Type: Report from Study
  Country: CA (occurrence: CA)
  Receive Date: 20230824
  Receipt Date: 20250710
  Transmission Date: 20251021
  Serious: Yes (Other)
  Sender: SANDOZ
  Company Number: CA-SANDOZ-SDZ2023CA017643

PATIENT
  Age: 88 Year
  Sex: Male

DRUGS (1)
  1. HYRIMOZ [Suspect]
     Active Substance: ADALIMUMAB-ADAZ
     Indication: Psoriatic arthropathy
     Dosage: 40 MG, Q2W, 40 MG IN PRE-FILLED PEN
     Route: 058
     Dates: start: 20220406

REACTIONS (5)
  - Nephrolithiasis [Unknown]
  - Pain in extremity [Unknown]
  - Pain in extremity [Recovering/Resolving]
  - Gait disturbance [Recovering/Resolving]
  - General physical health deterioration [Unknown]

NARRATIVE: CASE EVENT DATE: 20250618
